FAERS Safety Report 11319157 (Version 1)
Quarter: 2015Q3

REPORT INFORMATION
  Report Type: Spontaneous
  Country: US (occurrence: US)
  Receive Date: 20150729
  Receipt Date: 20150729
  Transmission Date: 20151125
  Serious: No
  Sender: FDA-Public Use
  Company Number: US-ACTELION PHARMACEUTICALS US, INC.-A-US2014-110122

PATIENT
  Age: 60 Year
  Sex: Female

DRUGS (11)
  1. OPSUMIT [Suspect]
     Active Substance: MACITENTAN
     Indication: PULMONARY ARTERIAL HYPERTENSION
     Dosage: 10 MG, UNK
     Route: 048
     Dates: start: 20140123
  2. ALEVE [Concomitant]
     Active Substance: NAPROXEN SODIUM
  3. TREPROSTINIL [Suspect]
     Active Substance: TREPROSTINIL
     Indication: PRODUCT USED FOR UNKNOWN INDICATION
     Route: 065
  4. METOLAZONE. [Concomitant]
     Active Substance: METOLAZONE
  5. ADCIRCA [Concomitant]
     Active Substance: TADALAFIL
  6. SPIRONOLACTONE. [Concomitant]
     Active Substance: SPIRONOLACTONE
  7. DEXILANT [Concomitant]
     Active Substance: DEXLANSOPRAZOLE
  8. SPIRIVA [Concomitant]
     Active Substance: TIOTROPIUM BROMIDE MONOHYDRATE
  9. POTASSIUM [Concomitant]
     Active Substance: POTASSIUM
  10. SYMBICORT [Concomitant]
     Active Substance: BUDESONIDE\FORMOTEROL FUMARATE DIHYDRATE
  11. FUROSEMIDE. [Concomitant]
     Active Substance: FUROSEMIDE

REACTIONS (3)
  - Headache [Unknown]
  - Abdominal pain upper [Unknown]
  - Epistaxis [Unknown]

NARRATIVE: CASE EVENT DATE: 20141214
